FAERS Safety Report 5850113-2 (Version None)
Quarter: 2008Q3

REPORT INFORMATION
  Report Type: 
  Country: None (occurrence: None)
  Receive Date: 20080819
  Receipt Date: 20080815
  Transmission Date: 20090109
  Serious: Yes (Other)
  Sender: FDA-Public Use
  Company Number: US-BOEHRINGER INGELHEIM GMBH, GERMANY-2008-BP-11893BP

PATIENT
  Age: 65 Year
  Sex: Female
  Weight: 59 kg

DRUGS (2)
  1. SPIRIVA [Suspect]
     Indication: CHRONIC OBSTRUCTIVE PULMONARY DISEASE
     Dates: start: 20050105, end: 20080728
  2. ALBUTEROL SULFATE AND IPRATROPIUM BROMIDE [Concomitant]
     Dates: start: 20080601, end: 20080728

REACTIONS (5)
  - ANGIOEDEMA [None]
  - BURNING SENSATION [None]
  - LIP BLISTER [None]
  - LIP SWELLING [None]
  - PRURITUS [None]
